FAERS Safety Report 5474211-0 (Version None)
Quarter: 2007Q4

REPORT INFORMATION
  Report Type: 
  Country: None (occurrence: None)
  Receive Date: 20071002
  Receipt Date: 20070522
  Transmission Date: 20080405
  Serious: No
  Sender: FDA-Public Use
  Company Number: US-ASTRAZENECA-2007UW12631

PATIENT
  Age: 54 Year
  Sex: Female
  Weight: 99.8 kg

DRUGS (4)
  1. ARIMIDEX [Suspect]
     Indication: BREAST CANCER FEMALE
     Route: 048
     Dates: start: 20061001
  2. ARIMIDEX [Suspect]
     Route: 048
     Dates: start: 20070201
  3. LISINOPRIL [Suspect]
     Route: 048
  4. METFORMIN HCL [Suspect]

REACTIONS (1)
  - MUSCLE SPASMS [None]
